FAERS Safety Report 9741860 (Version 2)
Quarter: 2014Q1

REPORT INFORMATION
  Report Type: Spontaneous
  Country: US (occurrence: US)
  Receive Date: 20131210
  Receipt Date: 20140207
  Transmission Date: 20141002
  Serious: No
  Sender: FDA-Public Use
  Company Number: US-BAYER-2013-150548

PATIENT
  Age: 55 Year
  Sex: Female
  Weight: 57.6 kg

DRUGS (9)
  1. BETASERON [Suspect]
     Dosage: 0.25 MG, QOD
     Route: 058
  2. BENADRYL [Concomitant]
     Dosage: 25 MG, UNK
  3. CALCIUM [Concomitant]
     Dosage: 500
  4. TYLENOL ARTHRITIS [Concomitant]
     Dosage: 650 MG, UNK
  5. LASIX [Concomitant]
     Dosage: 20 MG, UNK
  6. ALDACTONE [POTASSIUM CANRENOATE] [Concomitant]
     Dosage: 25 MG, UNK
  7. BENAZEPRIL [Concomitant]
     Dosage: 10 MG, UNK
  8. BACLOFEN [Concomitant]
     Dosage: 10 MG, UNK
  9. ZANAFLEX [Concomitant]
     Dosage: 2 MG, UNK

REACTIONS (5)
  - Vision blurred [Unknown]
  - Paraesthesia [Unknown]
  - Injection site rash [Not Recovered/Not Resolved]
  - Hypoaesthesia [Unknown]
  - Pyrexia [Unknown]
